FAERS Safety Report 7443015-1 (Version None)
Quarter: 2011Q2

REPORT INFORMATION
  Report Type: 
  Country: None (occurrence: None)
  Receive Date: 20110428
  Receipt Date: 20110422
  Transmission Date: 20111010
  Serious: Yes (Death)
  Sender: FDA-Public Use
  Company Number: KR-PFIZER INC-2009249983

PATIENT
  Age: 39 Year
  Sex: Male
  Weight: 69.3 kg

DRUGS (10)
  1. MEROPENEM [Concomitant]
     Dosage: UNK
     Dates: start: 20080829, end: 20081019
  2. LASIX [Concomitant]
     Dosage: UNK
     Dates: start: 20080904, end: 20081019
  3. RULID [Concomitant]
     Indication: ANTIBIOTIC THERAPY
     Dosage: UNK
     Route: 048
     Dates: start: 20081019, end: 20081023
  4. CIPROFLOXACIN HYDROCHLORIDE [Concomitant]
     Indication: ANTIBIOTIC THERAPY
     Dosage: 2250 MG DAILY DOSAGE
     Route: 048
     Dates: start: 20081019, end: 20081023
  5. TEICOPLANIN [Concomitant]
     Dosage: UNK
     Dates: start: 20080915, end: 20081019
  6. ATIVAN [Concomitant]
     Dosage: UNK
     Route: 048
     Dates: start: 20080916, end: 20081019
  7. VORICONAZOLE [Suspect]
     Indication: ASPERGILLOSIS
     Dosage: 200 MG, 2X/DAY
     Route: 048
     Dates: start: 20081019
  8. K-CONTIN CONTINUS [Concomitant]
     Indication: MINERAL SUPPLEMENTATION
     Dosage: UNK
     Route: 048
     Dates: start: 20081019, end: 20081023
  9. VITAMIN K TAB [Concomitant]
     Dosage: UNK
     Dates: start: 20080916, end: 20081019
  10. ALLOPURINOL [Concomitant]
     Dosage: UNK
     Route: 048
     Dates: start: 20080807, end: 20081019

REACTIONS (2)
  - CARDIAC ARREST [None]
  - RENAL FAILURE ACUTE [None]
